FAERS Safety Report 7120964-5 (Version None)
Quarter: 2010Q4

REPORT INFORMATION
  Report Type: 
  Country: None (occurrence: None)
  Receive Date: 20101124
  Receipt Date: 20100408
  Transmission Date: 20110411
  Serious: Yes (Other)
  Sender: FDA-Public Use
  Company Number: US-PFIZER INC-2010030513

PATIENT
  Sex: Male
  Weight: 110.22 kg

DRUGS (1)
  1. TIKOSYN [Suspect]

REACTIONS (2)
  - GYNAECOMASTIA [None]
  - PARAESTHESIA [None]
